FAERS Safety Report 7929146-8 (Version None)
Quarter: 2011Q4

REPORT INFORMATION
  Report Type: 
  Country: None (occurrence: None)
  Receive Date: 20111120
  Receipt Date: 20111108
  Transmission Date: 20120403
  Serious: Yes (Hospitalization, Other)
  Sender: FDA-Public Use
  Company Number: CA-BAXTER-2011BH027308

PATIENT
  Age: 79 Year
  Sex: Female

DRUGS (3)
  1. DIANEAL [Suspect]
     Indication: PERITONEAL DIALYSIS
     Route: 033
     Dates: end: 20110101
  2. NUTRINEAL [Suspect]
     Indication: PERITONEAL DIALYSIS
     Route: 033
     Dates: end: 20110101
  3. EXTRANEAL [Suspect]
     Indication: PERITONEAL DIALYSIS
     Route: 033
     Dates: end: 20110101

REACTIONS (7)
  - PRODUCT CONTAINER ISSUE [None]
  - DIARRHOEA [None]
  - DISCOMFORT [None]
  - SEPSIS [None]
  - CLOSTRIDIAL INFECTION [None]
  - CATHETER SITE INFECTION [None]
  - ABDOMINAL PAIN UPPER [None]
